FAERS Safety Report 4708425-1 (Version None)
Quarter: 2005Q3

REPORT INFORMATION
  Report Type: 
  Country: None (occurrence: None)
  Receive Date: 20050706
  Receipt Date: 20050624
  Transmission Date: 20060218
  Serious: Yes (Hospitalization)
  Sender: FDA-Public Use
  Company Number: KII-2005-0017181

PATIENT
  Age: 51 Year
  Sex: Male

DRUGS (15)
  1. OXYCONTIN [Suspect]
     Dosage: SEE TEXT, ORAL
     Route: 048
  2. FUROSEMIDE [Suspect]
     Dosage: SEE TEXT, ORAL
     Route: 048
  3. ANTIEPILEPTICS ( ) [Suspect]
     Dosage: SEE TEXT, ORAL
     Route: 048
  4. SSRI ( ) [Suspect]
     Dosage: SEE TEXT, ORAL
     Route: 048
  5. OTHER TYPE OF GASTROINTESTINAL PREP ( ) [Suspect]
     Dosage: SEE TEXT, ORAL
     Route: 048
  6. NORVASC [Suspect]
     Dosage: SEE TEXT, ORAL
     Route: 048
  7. CLONIDINE [Suspect]
     Dosage: 0.3 MG, SEE TEXT, ORAL
     Route: 048
  8. CYCLOBENZAPRINE HCL [Suspect]
     Dosage: SEE TEXT, ORAL
     Route: 048
  9. ACETAMINOPHEN AND OXYCODONE HCL [Suspect]
     Dosage: 2 TABLET, SEE TEXT, ORAL
     Route: 048
  10. PROTON PUMP INHIBITOR ( ) [Suspect]
     Dosage: SEE TEXT, ORAL
     Route: 048
  11. ANTIEPILEPTICS [Concomitant]
  12. DYAZIDE (TRIAMTERENE, HYDROCHLOROTHIAZIDE) [Concomitant]
  13. ASPIRIN [Concomitant]
  14. CARBAMAZEPINE [Concomitant]
  15. M.V.I. (ERGOCALCIFEROL, ASCORBIC ACID, TOCOPHEROL, PYRIDOXINE HYDROCHL [Concomitant]

REACTIONS (3)
  - MENTAL STATUS CHANGES [None]
  - RESPIRATORY DEPRESSION [None]
  - WRONG DRUG ADMINISTERED [None]
